FAERS Safety Report 18679736 (Version 2)
Quarter: 2020Q4

REPORT INFORMATION
  Report Type: Spontaneous
  Country: US (occurrence: US)
  Receive Date: 20201229
  Receipt Date: 20201230
  Transmission Date: 20210114
  Serious: No
  Sender: FDA-Public Use
  Company Number: US-009507513-2012USA012217

PATIENT
  Sex: Female

DRUGS (11)
  1. PROGESTERONE. [Concomitant]
     Active Substance: PROGESTERONE
  2. MENOPUR [Concomitant]
     Active Substance: FOLLITROPIN\LUTEINIZING HORMONE
  3. FOLLISTIM AQ [Suspect]
     Active Substance: FOLLITROPIN
     Indication: INFERTILITY FEMALE
     Dosage: STRENGTH: 900IU/1.08ML, 450 UNITS, QD
     Route: 058
     Dates: start: 20191231
  4. AZITHROMYCIN ANHYDROUS. [Concomitant]
     Active Substance: AZITHROMYCIN ANHYDROUS
  5. DOXYCYCLINE. [Concomitant]
     Active Substance: DOXYCYCLINE
  6. FOLLISTIM AQ [Suspect]
     Active Substance: FOLLITROPIN
  7. OVIDREL [Concomitant]
     Active Substance: CHORIOGONADOTROPIN ALFA
  8. ESTRADIOL. [Concomitant]
     Active Substance: ESTRADIOL
  9. NOVAREL [Concomitant]
     Active Substance: CHORIOGONADOTROPIN ALFA
  10. DIAZEPAM. [Concomitant]
     Active Substance: DIAZEPAM
  11. LETROZOLE. [Concomitant]
     Active Substance: LETROZOLE

REACTIONS (1)
  - Rash [Recovered/Resolved]
